FAERS Safety Report 8048085-8 (Version None)
Quarter: 2012Q1

REPORT INFORMATION
  Report Type: 
  Country: None (occurrence: None)
  Receive Date: 20120113
  Receipt Date: 20120113
  Transmission Date: 20120608
  Serious: No
  Sender: FDA-Public Use
  Company Number: None

PATIENT
  Age: 66 Year
  Sex: Male
  Weight: 77.27 kg

DRUGS (1)
  1. HEPARIN [Suspect]
     Indication: THROMBOSIS PROPHYLAXIS
     Dosage: 5000 UNITS TID SQ
     Route: 058
     Dates: start: 20091116, end: 20091126

REACTIONS (2)
  - HEPARIN-INDUCED THROMBOCYTOPENIA TEST POSITIVE [None]
  - THROMBOCYTOPENIA [None]
